FAERS Safety Report 8410279-7 (Version None)
Quarter: 2012Q2

REPORT INFORMATION
  Report Type: 
  Country: None (occurrence: None)
  Receive Date: 20120529
  Receipt Date: 20120514
  Transmission Date: 20120825
  Serious: Yes (Other)
  Sender: FDA-Public Use
  Company Number: JPI-P-021299

PATIENT
  Age: 67 Year
  Sex: Male
  Weight: 117.028 kg

DRUGS (3)
  1. ATORVASTATIN CALCIUM [Concomitant]
  2. XYREM [Suspect]
     Indication: PRODUCT USED FOR UNKNOWN INDICATION
     Dosage: 6 GM (2 GM, 3 IN 1 D), ORAL
     Route: 048
  3. ACEBUTOLOL [Concomitant]

REACTIONS (13)
  - HYPERHIDROSIS [None]
  - INCORRECT DOSE ADMINISTERED [None]
  - COUGH [None]
  - OROPHARYNGEAL PAIN [None]
  - CONFUSIONAL STATE [None]
  - NASAL CONGESTION [None]
  - MEMORY IMPAIRMENT [None]
  - FATIGUE [None]
  - DYSARTHRIA [None]
  - MYALGIA [None]
  - PROCEDURAL PAIN [None]
  - POOR QUALITY SLEEP [None]
  - NASOPHARYNGITIS [None]
